FAERS Safety Report 13825665 (Version 1)
Quarter: 2017Q3

REPORT INFORMATION
  Report Type: Spontaneous
  Country: US (occurrence: US)
  Receive Date: 20170802
  Receipt Date: 20170802
  Transmission Date: 20171127
  Serious: Yes (Other)
  Sender: FDA-Public Use
  Company Number: US-GLENMARK PHARMACEUTICALS-2017GMK028341

PATIENT
  Sex: Male
  Weight: 72.3 kg

DRUGS (3)
  1. HYDROCORTISONE BUTYRATE. [Suspect]
     Active Substance: HYDROCORTISONE BUTYRATE
     Dosage: 37.5 MG/M2, OD (40 MG IN THE MORNING AND 20 MG IN THE EVENING)
     Route: 065
  2. HYDROCORTISONE BUTYRATE. [Suspect]
     Active Substance: HYDROCORTISONE BUTYRATE
     Indication: ADRENOGENITAL SYNDROME
     Dosage: UNK
     Route: 065
  3. HYDROCORTISONE BUTYRATE. [Suspect]
     Active Substance: HYDROCORTISONE BUTYRATE
     Dosage: ON INCREASED DOSE (STARTED AT AGE OF 9 YEARS)UNK
     Route: 065

REACTIONS (1)
  - Blood growth hormone decreased [Recovered/Resolved]
